FAERS Safety Report 24383363 (Version 4)
Quarter: 2024Q4

REPORT INFORMATION
  Report Type: Spontaneous
  Country: US (occurrence: US)
  Receive Date: 20241001
  Receipt Date: 20241119
  Transmission Date: 20250114
  Serious: Yes (Other)
  Sender: ROCHE
  Company Number: US-ROCHE-10000088779

PATIENT
  Age: 78 Year
  Sex: Female
  Weight: 73.48 kg

DRUGS (12)
  1. ACTEMRA [Suspect]
     Active Substance: TOCILIZUMAB
     Indication: Giant cell arteritis
     Route: 058
  2. SPIRONOLACTONE [Concomitant]
     Active Substance: SPIRONOLACTONE
     Route: 048
  3. CARVEDILOL [Concomitant]
     Active Substance: CARVEDILOL
     Indication: Heart rate
     Route: 048
     Dates: start: 2003
  4. LEVOTHYROXINE [Concomitant]
     Active Substance: LEVOTHYROXINE
     Dosage: 25 MCG
     Route: 048
  5. PROLIA [Concomitant]
     Active Substance: DENOSUMAB
     Indication: Osteopenia
     Route: 058
     Dates: start: 2023
  6. RIVAROXABAN [Concomitant]
     Active Substance: RIVAROXABAN
     Route: 048
  7. LEVOCETIRIZINE [Concomitant]
     Active Substance: LEVOCETIRIZINE
     Route: 048
     Dates: start: 202311
  8. ATORVASTATIN [Concomitant]
     Active Substance: ATORVASTATIN
     Indication: Blood cholesterol increased
     Route: 048
     Dates: start: 20231105
  9. MONTELUKAST [Concomitant]
     Active Substance: MONTELUKAST
     Indication: Hypersensitivity
     Route: 048
  10. OMEPRAZOLE [Concomitant]
     Active Substance: OMEPRAZOLE
     Indication: Gastrooesophageal reflux disease
     Route: 048
  11. TYLENOL [Concomitant]
     Active Substance: ACETAMINOPHEN
     Indication: Pain
  12. MAGNESIUM [Concomitant]
     Active Substance: MAGNESIUM
     Indication: Pain

REACTIONS (12)
  - Myalgia [Recovered/Resolved]
  - Cardiac failure congestive [Not Recovered/Not Resolved]
  - Fungal infection [Recovering/Resolving]
  - Breast cancer [Not Recovered/Not Resolved]
  - Alopecia [Not Recovered/Not Resolved]
  - Product complaint [Unknown]
  - Myalgia [Unknown]
  - Joint swelling [Unknown]
  - Memory impairment [Unknown]
  - Fluid retention [Unknown]
  - Product storage error [Unknown]
  - Device difficult to use [Unknown]

NARRATIVE: CASE EVENT DATE: 20240101
